FAERS Safety Report 22140268 (Version 1)
Quarter: 2023Q1

REPORT INFORMATION
  Report Type: Spontaneous
  Country: US (occurrence: US)
  Receive Date: 20230327
  Receipt Date: 20230327
  Transmission Date: 20230418
  Serious: No
  Sender: FDA-Public Use
  Company Number: US-ELI_LILLY_AND_COMPANY-US202303013336

PATIENT
  Age: 62 Year
  Sex: Female

DRUGS (2)
  1. TRULICITY [Suspect]
     Active Substance: DULAGLUTIDE
     Indication: Product used for unknown indication
     Dosage: 1.5 MG, UNKNOWN
     Route: 065
  2. PREDNISONE [Suspect]
     Active Substance: PREDNISONE
     Indication: Asthma
     Dosage: UNK, UNKNOWN
     Route: 065

REACTIONS (7)
  - Respiratory disorder [Unknown]
  - Asthma [Unknown]
  - Sinusitis [Unknown]
  - Sinus polyp [Unknown]
  - Glycosylated haemoglobin increased [Unknown]
  - Blood glucose increased [Unknown]
  - Hypersensitivity [Unknown]

NARRATIVE: CASE EVENT DATE: 20221001
